FAERS Safety Report 9402652 (Version 1)
Quarter: 2013Q3

REPORT INFORMATION
  Report Type: Spontaneous
  Country: US (occurrence: US)
  Receive Date: 20130716
  Receipt Date: 20130716
  Transmission Date: 20140515
  Serious: No
  Sender: FDA-Public Use
  Company Number: US-PFIZER INC-2013206523

PATIENT
  Age: 46 Year
  Sex: Female
  Weight: 87.08 kg

DRUGS (3)
  1. ADVIL [Suspect]
     Indication: MIGRAINE
     Dosage: 400 MG, TWO TIMES A DAY
     Dates: start: 2013
  2. TYLENOL [Suspect]
     Indication: MIGRAINE
     Dosage: UNK
     Dates: start: 2013, end: 2013
  3. HUMALOG [Concomitant]
     Indication: DIABETES MELLITUS
     Dosage: UNK

REACTIONS (2)
  - Drug ineffective [Unknown]
  - Drug effect incomplete [Unknown]
